FAERS Safety Report 7621041-7 (Version None)
Quarter: 2011Q3

REPORT INFORMATION
  Report Type: 
  Country: None (occurrence: None)
  Receive Date: 20110719
  Receipt Date: 20100604
  Transmission Date: 20111222
  Serious: No
  Sender: FDA-Public Use
  Company Number: US-KINGPHARMUSA00001-K201000695

PATIENT
  Age: 57 Year
  Sex: Male
  Weight: 76.644 kg

DRUGS (2)
  1. LEVOXYL [Suspect]
     Dosage: 12.5 MCG, QOD
     Route: 048
     Dates: start: 20100101
  2. LEVOXYL [Suspect]
     Indication: THYROIDECTOMY
     Dosage: 25 MCG, QD
     Route: 048
     Dates: start: 20050101, end: 20100501

REACTIONS (5)
  - TRI-IODOTHYRONINE ABNORMAL [None]
  - MALAISE [None]
  - BLOOD THYROID STIMULATING HORMONE DECREASED [None]
  - THYROID FUNCTION TEST ABNORMAL [None]
  - HYPERTHYROIDISM [None]
